FAERS Safety Report 6188150-3 (Version None)
Quarter: 2009Q2

REPORT INFORMATION
  Report Type: 
  Country: None (occurrence: None)
  Receive Date: 20090513
  Receipt Date: 20081017
  Transmission Date: 20091009
  Serious: No
  Sender: FDA-Public Use
  Company Number: A0741582A

PATIENT
  Age: 37 Year
  Sex: Female

DRUGS (2)
  1. DYNACIRC CR [Suspect]
     Indication: HYPERTENSION
     Dosage: 5MG PER DAY
     Route: 048
     Dates: start: 20080629
  2. MULTI-VITAMIN [Concomitant]

REACTIONS (3)
  - ALOPECIA [None]
  - BACK PAIN [None]
  - NECK PAIN [None]
